FAERS Safety Report 20838630 (Version 2)
Quarter: 2022Q2

REPORT INFORMATION
  Report Type: Spontaneous
  Country: CH (occurrence: CH)
  Receive Date: 20220517
  Receipt Date: 20220601
  Transmission Date: 20220721
  Serious: Yes (Life-Threatening, Hospitalization)
  Sender: FDA-Public Use
  Company Number: CH-MYLANLABS-2022M1036406

PATIENT
  Age: 46 Year
  Sex: Male

DRUGS (7)
  1. EPINEPHRINE [Suspect]
     Active Substance: EPINEPHRINE
     Indication: Anaphylactic reaction
     Dosage: 50 MICROGRAM A BOLUS OF 50MCG OF INTRAVENOUS EPINEPHRINE (DILUTION OF 1:100 000 (0.01MG/ML))
     Route: 040
  2. EPINEPHRINE [Suspect]
     Active Substance: EPINEPHRINE
     Indication: Kounis syndrome
  3. NITROGLYCERIN [Concomitant]
     Active Substance: NITROGLYCERIN
     Indication: Chest pain
     Dosage: UNK
     Route: 065
  4. METHYLPREDNISOLONE [Concomitant]
     Active Substance: METHYLPREDNISOLONE
     Indication: Antiallergic therapy
     Dosage: 125 MILLIGRAM
     Route: 042
  5. CLEMASTINE [Concomitant]
     Active Substance: CLEMASTINE
     Indication: Antiallergic therapy
     Dosage: 2 MILLIGRAM
     Route: 042
  6. EPHEDRINE [Concomitant]
     Active Substance: EPHEDRINE
     Indication: Anaphylactic reaction
     Dosage: 10 MILLIGRAM, A BOLUS OF 10 MG OF INTRAVENOUS EPHEDRINE (DILUTION OF 1: 100 000 (0.01 MG/ML))
     Route: 040
  7. EPHEDRINE [Concomitant]
     Active Substance: EPHEDRINE
     Indication: Kounis syndrome

REACTIONS (2)
  - Arteriospasm coronary [Recovered/Resolved]
  - Condition aggravated [Recovered/Resolved]
